FAERS Safety Report 7828553-1 (Version None)
Quarter: 2011Q4

REPORT INFORMATION
  Report Type: 
  Country: None (occurrence: None)
  Receive Date: 20111020
  Receipt Date: 20111020
  Transmission Date: 20120403
  Serious: Yes (Other)
  Sender: FDA-Public Use
  Company Number: None

PATIENT
  Age: 36 Year
  Sex: Female

DRUGS (2)
  1. ZOMETA [Suspect]
     Indication: BREAST CANCER METASTATIC
     Dosage: UNKNOWN
  2. FEMARA [Concomitant]

REACTIONS (3)
  - OSTEONECROSIS OF JAW [None]
  - INFECTION [None]
  - SWELLING FACE [None]
